FAERS Safety Report 12438477 (Version 1)
Quarter: 2016Q2

REPORT INFORMATION
  Report Type: Spontaneous
  Country: US (occurrence: US)
  Receive Date: 20160606
  Receipt Date: 20160606
  Transmission Date: 20160815
  Serious: No
  Sender: FDA-Public Use
  Company Number: US-BAYER-2016-104278

PATIENT
  Age: 82 Year
  Sex: Male
  Weight: 92.97 kg

DRUGS (9)
  1. LEVOTHYROXIN [Concomitant]
     Active Substance: LEVOTHYROXINE
     Dosage: 1 DF, QD
  2. AMIODARONE [Concomitant]
     Active Substance: AMIODARONE
     Dosage: 1 DF, QD
  3. MULTIVITAMIN [Concomitant]
     Active Substance: VITAMINS
  4. TORASEMIDE [Concomitant]
     Active Substance: TORSEMIDE
     Dosage: 1 DF, QD
  5. ALEVE [Suspect]
     Active Substance: NAPROXEN SODIUM
     Indication: MYALGIA
     Dosage: UNK, PRN
     Route: 048
  6. AMLODIPINE [Concomitant]
     Active Substance: AMLODIPINE BESYLATE
  7. GABAPENTIN. [Concomitant]
     Active Substance: GABAPENTIN
     Dosage: UNK UNK, BID
  8. VITAMIN B12 [Concomitant]
     Active Substance: CYANOCOBALAMIN
  9. ASPIRIN. [Concomitant]
     Active Substance: ASPIRIN

REACTIONS (1)
  - Product use issue [None]
